FAERS Safety Report 9689137 (Version 1)
Quarter: 2013Q4

REPORT INFORMATION
  Report Type: Spontaneous
  Country: US (occurrence: None)
  Receive Date: 20131113
  Receipt Date: 20131113
  Transmission Date: 20140711
  Serious: Yes (Hospitalization)
  Sender: FDA-Public Use
  Company Number: US-013588

PATIENT
  Age: 27 Year
  Sex: Female

DRUGS (1)
  1. PREPOPIK [Suspect]
     Indication: BOWEL PREPARATION
     Dosage: 2 DF TOTAL, 2 PACKETS ORAL
     Route: 048
     Dates: start: 20130513, end: 20130513

REACTIONS (2)
  - Dehydration [None]
  - Muscle spasms [None]
